FAERS Safety Report 9498334 (Version 1)
Quarter: 2013Q3

REPORT INFORMATION
  Report Type: Report from Study
  Country: GR (occurrence: GR)
  Receive Date: 20130904
  Receipt Date: 20130904
  Transmission Date: 20140515
  Serious: Yes (Hospitalization, Other)
  Sender: FDA-Public Use
  Company Number: GR-ROCHE-1268953

PATIENT
  Age: 49 Year
  Sex: Female

DRUGS (9)
  1. ERLOTINIB [Suspect]
     Indication: NON-SMALL CELL LUNG CANCER STAGE IV
     Route: 065
     Dates: start: 201101, end: 201207
  2. BEVACIZUMAB [Suspect]
     Indication: NON-SMALL CELL LUNG CANCER STAGE IV
     Route: 065
  3. DOCETAXEL [Suspect]
     Indication: NON-SMALL CELL LUNG CANCER STAGE IV
     Route: 065
  4. CARBOPLATIN [Suspect]
     Indication: NON-SMALL CELL LUNG CANCER STAGE IV
     Route: 065
  5. ZOLEDRONIC ACID [Suspect]
     Indication: NON-SMALL CELL LUNG CANCER STAGE IV
     Route: 065
  6. CISPLATIN [Suspect]
     Indication: NON-SMALL CELL LUNG CANCER STAGE IV
     Route: 065
  7. PEMETREXED [Suspect]
     Indication: NON-SMALL CELL LUNG CANCER STAGE IV
     Route: 065
  8. VINORELBINE [Suspect]
     Indication: NON-SMALL CELL LUNG CANCER STAGE IV
     Route: 065
  9. PACLITAXEL [Suspect]
     Indication: NON-SMALL CELL LUNG CANCER STAGE IV
     Route: 065

REACTIONS (9)
  - Haemoptysis [Unknown]
  - Drug effect incomplete [Unknown]
  - Central nervous system lesion [Unknown]
  - Nervous system disorder [Unknown]
  - Pulmonary mass [Unknown]
  - Productive cough [Unknown]
  - Metastatic neoplasm [Unknown]
  - Metastases to central nervous system [Unknown]
  - Decreased appetite [Unknown]
